FAERS Safety Report 8542491-0 (Version None)
Quarter: 2012Q3

REPORT INFORMATION
  Report Type: 
  Country: None (occurrence: None)
  Receive Date: 20120726
  Receipt Date: 20120104
  Transmission Date: 20120928
  Serious: Yes (Other)
  Sender: FDA-Public Use
  Company Number: US-ASTRAZENECA-2010SE44022

PATIENT
  Age: 47 Year
  Sex: Female
  Weight: 63.5 kg

DRUGS (13)
  1. SEROQUEL XR [Suspect]
     Route: 048
  2. HYDROCODONE BITARTRATE [Concomitant]
     Indication: PAIN
  3. SEROQUEL XR [Suspect]
     Indication: DEPRESSION
     Dosage: 50 MILLIGRAMS TO 300 MILLIGRAMS DAILY
     Route: 048
     Dates: start: 20080101
  4. SEROQUEL XR [Suspect]
     Dosage: 100 MG OR 200 MG AT NIGHT
     Route: 048
  5. SEROQUEL XR [Suspect]
     Route: 048
     Dates: start: 20090101
  6. SOMA [Concomitant]
  7. LEXAPRO [Concomitant]
  8. SEROQUEL XR [Suspect]
     Dosage: 100 MG OR 200 MG AT NIGHT
     Route: 048
  9. SEROQUEL XR [Suspect]
     Route: 048
     Dates: start: 20090101
  10. CLONIPINE [Concomitant]
     Indication: ANXIETY
  11. SEROQUEL XR [Suspect]
     Indication: BIPOLAR DISORDER
     Dosage: 50 MILLIGRAMS TO 300 MILLIGRAMS DAILY
     Route: 048
     Dates: start: 20080101
  12. SEROQUEL XR [Suspect]
     Route: 048
  13. METHADONE [Concomitant]
     Indication: PAIN

REACTIONS (17)
  - WEIGHT DECREASED [None]
  - ANTISOCIAL BEHAVIOUR [None]
  - INSOMNIA [None]
  - WEIGHT INCREASED [None]
  - PANIC DISORDER [None]
  - PHOBIA [None]
  - MULTIPLE SCLEROSIS [None]
  - HYPERVENTILATION [None]
  - ANXIETY [None]
  - THERAPEUTIC RESPONSE INCREASED [None]
  - SOMNOLENCE [None]
  - SUICIDAL IDEATION [None]
  - MANIA [None]
  - WRONG TECHNIQUE IN DRUG USAGE PROCESS [None]
  - DEPRESSION [None]
  - FATIGUE [None]
  - DRUG DOSE OMISSION [None]
